FAERS Safety Report 7576471-9 (Version None)
Quarter: 2011Q2

REPORT INFORMATION
  Report Type: 
  Country: None (occurrence: None)
  Receive Date: 20110624
  Receipt Date: 20110624
  Transmission Date: 20111010
  Serious: Yes (Hospitalization, Other)
  Sender: FDA-Public Use
  Company Number: None

PATIENT
  Sex: Female
  Weight: 86.1834 kg

DRUGS (1)
  1. MIRENA [Suspect]
     Indication: CONTRACEPTION
     Dosage: 1 ONE-TIME INSERTION INTRACERVICAL
     Route: 019
     Dates: start: 20080401, end: 20100115

REACTIONS (3)
  - HYPERTHYROIDISM [None]
  - DEVICE MALFUNCTION [None]
  - HYPOTHYROIDISM [None]
